FAERS Safety Report 21474568 (Version 1)
Quarter: 2022Q4

REPORT INFORMATION
  Report Type: Spontaneous
  Country: US (occurrence: US)
  Receive Date: 20221018
  Receipt Date: 20221018
  Transmission Date: 20230113
  Serious: No
  Sender: FDA-Public Use
  Company Number: US-CELLTRION INC.-2021US013192

PATIENT

DRUGS (2)
  1. INFLECTRA [Suspect]
     Active Substance: INFLIXIMAB-DYYB
     Indication: Psoriatic arthropathy
     Dosage: UNKNOWN DOSE ADMINISTERED AS INTRAVENOUS INFUSION PRESCRIBED TO BE ADMINISTERED EVERY 2 MONTHS
     Route: 042
     Dates: start: 2018, end: 2021
  2. INFLECTRA [Suspect]
     Active Substance: INFLIXIMAB-DYYB
     Indication: Arthralgia

REACTIONS (3)
  - Condition aggravated [Not Recovered/Not Resolved]
  - Treatment delayed [Not Recovered/Not Resolved]
  - Off label use [Unknown]

NARRATIVE: CASE EVENT DATE: 20210101
